FAERS Safety Report 5507024-1 (Version None)
Quarter: 2007Q4

REPORT INFORMATION
  Report Type: 
  Country: None (occurrence: None)
  Receive Date: 20071105
  Receipt Date: 20071016
  Transmission Date: 20080405
  Serious: No
  Sender: FDA-Public Use
  Company Number: US-BOEHRINGER INGELHEIM PHARMACEUTICALS, INC.-2006-BP-04616BP

PATIENT
  Sex: Female

DRUGS (79)
  1. MIRAPEX [Suspect]
     Indication: RESTLESS LEGS SYNDROME
     Route: 048
     Dates: start: 19991101, end: 20060501
  2. VALIUM [Concomitant]
     Dates: start: 19940201
  3. NEURONTIN [Concomitant]
     Dates: start: 19990901
  4. DARVON-N [Concomitant]
     Indication: PAIN
     Dates: start: 19940201
  5. EFFEXOR XR [Concomitant]
     Indication: ANXIETY
     Dates: start: 20000101
  6. PRAMIPEXOLE [Concomitant]
     Dates: start: 20000421
  7. ADVIL [Concomitant]
     Route: 048
     Dates: start: 19990101
  8. CARISOPRODOL [Concomitant]
     Indication: MUSCLE SPASMS
     Dates: start: 20000501
  9. PREVACID [Concomitant]
     Indication: HIATUS HERNIA
     Dates: start: 20000501
  10. SOMA [Concomitant]
     Dates: start: 20000814
  11. LASIX [Concomitant]
     Dates: start: 20010608
  12. SYNTHROID [Concomitant]
     Indication: HYPOTHYROIDISM
     Dates: start: 20010829
  13. ESTROGEN VAGINAL CREAM [Concomitant]
     Indication: MENOPAUSE
     Route: 067
     Dates: start: 20010917
  14. PREMARIN [Concomitant]
     Dates: start: 20011023
  15. VICODIN ES [Concomitant]
     Dates: start: 20020311
  16. HYDROCORTISONE [Concomitant]
     Dates: start: 20030303
  17. CELEBREX [Concomitant]
     Dates: start: 20001101
  18. VOLTAREN [Concomitant]
     Dates: start: 20000101
  19. DULCOLAX [Concomitant]
     Indication: CONSTIPATION
     Dates: start: 20020301
  20. SENOKOT [Concomitant]
     Dates: start: 20000601
  21. ORTHO-NOVUM [Concomitant]
     Dates: start: 20000601
  22. LECITHIN [Concomitant]
     Dates: start: 20000601
  23. CLIMARA [Concomitant]
     Dates: start: 20000801
  24. PROVERA [Concomitant]
     Dates: start: 20000801
  25. PEPCID [Concomitant]
     Dates: start: 19990101
  26. HUMIBID [Concomitant]
     Dates: start: 20030401
  27. TRIAZOLAM [Concomitant]
     Dates: start: 20060201
  28. OXYCODONE AND ASA [Concomitant]
     Dates: start: 20060201
  29. TESTOSTERONE/SOY [Concomitant]
     Dates: start: 20060201
  30. REQUIP [Concomitant]
     Indication: RESTLESS LEGS SYNDROME
     Dates: start: 20060201
  31. CLONAZEPAM [Concomitant]
     Dates: start: 20060201
  32. DEXAMETHASONE TAB [Concomitant]
     Dates: start: 20060301
  33. PROZAC [Concomitant]
     Indication: RESTLESS LEGS SYNDROME
     Dates: end: 19990101
  34. PROZAC [Concomitant]
     Indication: PAIN MANAGEMENT
  35. PROZAC [Concomitant]
     Indication: OBSESSIVE-COMPULSIVE DISORDER
  36. MERIDIA [Concomitant]
     Route: 048
     Dates: start: 20050601
  37. HEPARIN [Concomitant]
     Dates: start: 20030701
  38. ZYRTEC [Concomitant]
     Indication: HYPERSENSITIVITY
     Route: 048
     Dates: start: 20040301
  39. FLEXERIL [Concomitant]
     Indication: MUSCLE RELAXANT THERAPY
     Dates: start: 20060701
  40. MUCINEX [Concomitant]
     Dates: start: 20060101
  41. JARRO-DOPHILUS EPS [Concomitant]
     Dates: start: 20060101
  42. VITAMIN D3 [Concomitant]
     Dates: start: 20060101
  43. NUTROPIN [Concomitant]
     Route: 042
     Dates: start: 20030225
  44. MINOCYCLINE HCL [Concomitant]
     Dates: start: 20020101
  45. MS CONTIN [Concomitant]
     Indication: PAIN
     Dates: start: 20020212, end: 20020226
  46. TOPAMAX [Concomitant]
     Indication: NERVOUS SYSTEM DISORDER
     Dates: start: 20020201
  47. OXYCONTIN [Concomitant]
     Route: 048
     Dates: start: 20020225, end: 20020313
  48. DURAGESIC-100 [Concomitant]
     Indication: PAIN
     Dates: start: 20020313
  49. BENADRYL [Concomitant]
     Dates: start: 20001019
  50. DARVON 65 [Concomitant]
     Indication: PAIN
     Dates: start: 20020201
  51. LEVOTHYROXINE SODIUM [Concomitant]
     Dates: start: 20020201
  52. LEVOTHYROXINE SODIUM [Concomitant]
     Indication: THYROID DISORDER
     Dates: start: 20010926
  53. PROPRANOLOL [Concomitant]
     Indication: TREMOR
     Dates: start: 20020201
  54. ALEVE [Concomitant]
     Dates: start: 20020101
  55. IBUPROFEN [Concomitant]
     Dates: start: 20020301
  56. DEMEROL [Concomitant]
     Indication: PAIN
     Route: 048
     Dates: start: 20030425
  57. THYROID TAB [Concomitant]
     Dates: start: 20030430
  58. DILAUDID [Concomitant]
     Indication: PAIN
     Dates: start: 20030130
  59. GLUCOSAMINE [Concomitant]
     Dates: start: 20030130
  60. GUIAFINEX [Concomitant]
     Dates: start: 20030601
  61. CLOBETASOL PROPIONATE [Concomitant]
     Dates: start: 20030601
  62. TRAMADOL HCL [Concomitant]
     Dates: start: 20030407
  63. HEPARIN [Concomitant]
  64. XENICAL [Concomitant]
     Indication: FAT INTOLERANCE
     Dates: start: 20041001
  65. PROVIGIL [Concomitant]
     Indication: SOMNOLENCE
     Dates: start: 20050901
  66. ENBREL [Concomitant]
  67. ZOCOR [Concomitant]
     Dates: start: 20040101
  68. BEXTRA [Concomitant]
     Route: 048
     Dates: start: 20021014
  69. DHEA [Concomitant]
     Dates: start: 20020101
  70. CHOLISTIN (RED YEAST) [Concomitant]
     Dates: start: 20000101
  71. MILK THISTLE [Concomitant]
     Dates: start: 20000101
  72. ENZYMES [Concomitant]
     Dates: start: 20000101
  73. CA 4 MAG [Concomitant]
     Dates: start: 20000101
  74. CHROM 400 [Concomitant]
     Dates: start: 20000101
  75. COQ10 [Concomitant]
     Dates: start: 20000101
  76. PREGNOLONE [Concomitant]
     Dates: start: 20000101
  77. VITAMIN CAP [Concomitant]
     Dates: start: 20000101
  78. ARTHROTEC [Concomitant]
     Dates: start: 20030701
  79. BUTORPHANOL TARTRATE [Concomitant]
     Dates: start: 20030701

REACTIONS (3)
  - HYPERPHAGIA [None]
  - OBSESSIVE-COMPULSIVE DISORDER [None]
  - PATHOLOGICAL GAMBLING [None]
